FAERS Safety Report 8356805-8 (Version None)
Quarter: 2012Q2

REPORT INFORMATION
  Report Type: 
  Country: None (occurrence: None)
  Receive Date: 20120514
  Receipt Date: 20120502
  Transmission Date: 20120825
  Serious: Yes (Other)
  Sender: FDA-Public Use
  Company Number: US-CELGENEUS-163-C5013-12040607

PATIENT
  Sex: Male
  Weight: 85.6 kg

DRUGS (4)
  1. ZOCOR [Concomitant]
     Dosage: 40 MILLIGRAM
     Route: 065
  2. LENALIDOMIDE [Suspect]
     Dosage: 10 MILLIGRAM
     Route: 048
     Dates: start: 20120327, end: 20120402
  3. ASPIRIN [Concomitant]
     Dosage: 81 MILLIGRAM
     Route: 065
  4. LENALIDOMIDE [Suspect]
     Indication: MULTIPLE MYELOMA
     Dosage: 10 MILLIGRAM
     Route: 048
     Dates: start: 20090701

REACTIONS (1)
  - MYELODYSPLASTIC SYNDROME [None]
